FAERS Safety Report 6611189-8 (Version None)
Quarter: 2010Q1

REPORT INFORMATION
  Report Type: 
  Country: None (occurrence: None)
  Receive Date: 20100301
  Receipt Date: 20100301
  Transmission Date: 20100710
  Serious: No
  Sender: FDA-Public Use
  Company Number: None

PATIENT
  Sex: Female
  Weight: 56.6996 kg

DRUGS (2)
  1. ALPRAZOLAM [Suspect]
     Indication: ANXIETY
     Dosage: 1 MG 3 TIMES A DAY
     Dates: start: 20030401
  2. ALPRAZOLAM [Suspect]
     Indication: PANIC DISORDER WITH AGORAPHOBIA
     Dosage: 1 MG 3 TIMES A DAY
     Dates: start: 20030401

REACTIONS (6)
  - DRUG INEFFECTIVE [None]
  - INFLUENZA [None]
  - INSOMNIA [None]
  - MALAISE [None]
  - NERVOUSNESS [None]
  - PRODUCT QUALITY ISSUE [None]
